FAERS Safety Report 20709787 (Version 2)
Quarter: 2022Q2

REPORT INFORMATION
  Report Type: Spontaneous
  Country: US (occurrence: US)
  Receive Date: 20220414
  Receipt Date: 20220421
  Transmission Date: 20220721
  Serious: Yes (Death, Other)
  Sender: FDA-Public Use
  Company Number: US-PFIZER INC-202200526288

PATIENT

DRUGS (1)
  1. VECURONIUM BROMIDE [Suspect]
     Active Substance: VECURONIUM BROMIDE
     Dosage: 1 MG

REACTIONS (2)
  - Death [Fatal]
  - Paralysis [Unknown]
